FAERS Safety Report 8114673 (Version 3)
Quarter: 2013Q4

REPORT INFORMATION
  Report Type: Spontaneous
  Country: PL (occurrence: PL)
  Receive Date: 20110831
  Receipt Date: 20131127
  Transmission Date: 20140711
  Serious: Yes (Other)
  Sender: FDA-Public Use
  Company Number: PHHY2011PL76588

PATIENT
  Age: 39 Year
  Sex: Male

DRUGS (2)
  1. PAROXETINE [Suspect]
     Indication: DEPRESSION
     Dosage: 40 MG, UNK
  2. CITALOPRAM [Suspect]
     Indication: DEPRESSION
     Dosage: 20 MG, UNK

REACTIONS (3)
  - Embolism venous [Recovered/Resolved]
  - Pulmonary embolism [Unknown]
  - Deep vein thrombosis [Unknown]
